FAERS Safety Report 22098674 (Version 1)
Quarter: 2023Q1

REPORT INFORMATION
  Report Type: Spontaneous
  Country: US (occurrence: US)
  Receive Date: 20230315
  Receipt Date: 20230315
  Transmission Date: 20230418
  Serious: No
  Sender: FDA-Public Use
  Company Number: US-BRISTOL-MYERS SQUIBB COMPANY-2023-037002

PATIENT
  Age: 76 Year
  Sex: Male
  Weight: 87.0 kg

DRUGS (1)
  1. POMALYST [Suspect]
     Active Substance: POMALIDOMIDE
     Indication: Plasma cell myeloma
     Dosage: EVERY OTHER DAY FOR 28 DAYS
     Route: 048
     Dates: start: 20181015

REACTIONS (2)
  - Dyspepsia [Unknown]
  - Off label use [Unknown]
